FAERS Safety Report 7502647-2 (Version None)
Quarter: 2011Q2

REPORT INFORMATION
  Report Type: 
  Country: None (occurrence: None)
  Receive Date: 20110525
  Receipt Date: 20110516
  Transmission Date: 20111010
  Serious: Yes (Hospitalization, Other)
  Sender: FDA-Public Use
  Company Number: PHFR2011GB02725

PATIENT
  Sex: Female

DRUGS (5)
  1. CLOZARIL [Suspect]
     Dosage: 11 X 100 MG TABLETS
  2. PIRENZEPINE [Concomitant]
     Indication: SALIVARY HYPERSECRETION
     Dosage: 100 MG, QD
     Route: 048
  3. CLOZARIL [Suspect]
     Indication: SCHIZOPHRENIA
     Dosage: 450 MG, QD
     Route: 048
     Dates: start: 20090526
  4. VENLAFAXINE [Concomitant]
     Indication: DEPRESSION
     Dosage: 150 MG, QD
     Route: 048
  5. CLOZARIL [Suspect]
     Dosage: UNK
     Dates: start: 20110428

REACTIONS (4)
  - OVERDOSE [None]
  - SEDATION [None]
  - ENURESIS [None]
  - ALTERED STATE OF CONSCIOUSNESS [None]
